FAERS Safety Report 8484138-8 (Version None)
Quarter: 2012Q2

REPORT INFORMATION
  Report Type: 
  Country: None (occurrence: None)
  Receive Date: 20120402
  Receipt Date: 20111103
  Transmission Date: 20120825
  Serious: Yes (Other)
  Sender: FDA-Public Use
  Company Number: A-NJ2011-56607

PATIENT
  Age: 72 Year
  Sex: Female

DRUGS (1)
  1. TRACLEER [Suspect]
     Indication: PULMONARY ARTERIAL HYPERTENSION
     Dosage: ORAL
     Route: 048
     Dates: start: 20111018

REACTIONS (7)
  - WEIGHT DECREASED [None]
  - FATIGUE [None]
  - BRONCHITIS [None]
  - DIZZINESS POSTURAL [None]
  - DECREASED APPETITE [None]
  - BODY TEMPERATURE INCREASED [None]
  - PNEUMONIA [None]
